FAERS Safety Report 5352065-0 (Version None)
Quarter: 2007Q2

REPORT INFORMATION
  Report Type: 
  Country: None (occurrence: None)
  Receive Date: 20070607
  Receipt Date: 20070525
  Transmission Date: 20071010
  Serious: Yes (Hospitalization)
  Sender: FDA-Public Use
  Company Number: GXKR2007GB04651

PATIENT
  Age: 38 Year
  Sex: Female

DRUGS (4)
  1. PAROXETINE HCL [Suspect]
     Dosage: 1.8 G, ONCE/SINGLE
  2. TEMAZEPAM [Suspect]
     Dosage: 280 MG, ONCE/SINGLE
  3. DIPHENHYDRAMINE HCL [Suspect]
     Dosage: 400 MG, ONCE/SINGLE
  4. ALCOHOL(ETHANOL) [Suspect]
     Dosage: 4.1, ONCE/SINGLE

REACTIONS (20)
  - AGITATION [None]
  - CHILLS [None]
  - CLONUS [None]
  - CONFUSIONAL STATE [None]
  - ELECTROCARDIOGRAM QT PROLONGED [None]
  - FLUSHING [None]
  - GRAND MAL CONVULSION [None]
  - HYPERHIDROSIS [None]
  - HYPERREFLEXIA [None]
  - HYPERTENSION [None]
  - HYPERTONIA [None]
  - MYDRIASIS [None]
  - OBSTRUCTIVE AIRWAYS DISORDER [None]
  - OVERDOSE [None]
  - PYREXIA [None]
  - RESPIRATORY RATE INCREASED [None]
  - SEROTONIN SYNDROME [None]
  - SOMNOLENCE [None]
  - TACHYCARDIA [None]
  - VOMITING [None]
